FAERS Safety Report 11219835 (Version 2)
Quarter: 2015Q3

REPORT INFORMATION
  Report Type: Spontaneous
  Country: US (occurrence: US)
  Receive Date: 20150625
  Receipt Date: 20150914
  Transmission Date: 20151125
  Serious: No
  Sender: FDA-Public Use
  Company Number: US-ASTRAZENECA-2015SE60440

PATIENT
  Age: 820 Month
  Sex: Female
  Weight: 46.3 kg

DRUGS (2)
  1. LYNPARZA [Suspect]
     Active Substance: OLAPARIB
     Indication: BREAST CANCER
     Route: 048
     Dates: start: 2015
  2. TRAZODONE [Concomitant]
     Active Substance: TRAZODONE HYDROCHLORIDE
     Dosage: UNKNOWN
     Route: 065

REACTIONS (8)
  - Sensory loss [Unknown]
  - Off label use [Unknown]
  - Dry mouth [Unknown]
  - Asthenia [Unknown]
  - Fatigue [Unknown]
  - Ageusia [Unknown]
  - Weight decreased [Unknown]
  - Product use issue [Unknown]

NARRATIVE: CASE EVENT DATE: 201501
